FAERS Safety Report 25417840 (Version 1)
Quarter: 2025Q2

REPORT INFORMATION
  Report Type: Spontaneous
  Country: US (occurrence: None)
  Receive Date: 20250609
  Receipt Date: 20250609
  Transmission Date: 20250716
  Serious: Yes (Other)
  Sender: FDA-CTU
  Company Number: None

PATIENT
  Age: 72 Year
  Sex: Male
  Weight: 99.45 kg

DRUGS (22)
  1. AUSTEDO XR [Suspect]
     Active Substance: DEUTETRABENAZINE
     Indication: Tardive dyskinesia
     Dosage: OTHER QUANTITY : 1 TABLET(S);?FREQUENCY : DAILY;?
     Route: 048
     Dates: start: 20250320, end: 20250327
  2. AUSTEDO XR [Suspect]
     Active Substance: DEUTETRABENAZINE
     Indication: Tardive dyskinesia
     Dosage: OTHER QUANTITY : 1 TABLET(S);?FREQUENCY : DAILY;?
     Route: 048
     Dates: start: 20250301, end: 20250308
  3. INGREZZA [Suspect]
     Active Substance: VALBENAZINE DITOSYLATE
  4. DEVICE [Concomitant]
     Active Substance: DEVICE
  5. HEARING AID [Concomitant]
  6. GLASSES [Concomitant]
  7. ZYPREXA [Concomitant]
     Active Substance: OLANZAPINE
  8. BUSPAR [Concomitant]
     Active Substance: BUSPIRONE HYDROCHLORIDE
  9. PROZAC [Concomitant]
     Active Substance: FLUOXETINE HYDROCHLORIDE
  10. VALSARTAN [Concomitant]
     Active Substance: VALSARTAN
  11. AMLODIPINE [Concomitant]
     Active Substance: AMLODIPINE BESYLATE
  12. HYDROCHLOROTHIAZIDE [Concomitant]
     Active Substance: HYDROCHLOROTHIAZIDE
  13. TYLENOL [Concomitant]
     Active Substance: ACETAMINOPHEN
  14. EZETIMIBE [Concomitant]
     Active Substance: EZETIMIBE
  15. RESUVASTATIN [Concomitant]
  16. FARZIGA [Concomitant]
  17. OMEPRAZOLE [Concomitant]
     Active Substance: OMEPRAZOLE
  18. PLAVIX [Concomitant]
     Active Substance: CLOPIDOGREL BISULFATE
  19. LANTUS [Concomitant]
     Active Substance: INSULIN GLARGINE
  20. MAUNJARO [Concomitant]
  21. VITAMIN D3 [Concomitant]
     Active Substance: CHOLECALCIFEROL
  22. ZYRTEC [Concomitant]
     Active Substance: CETIRIZINE HYDROCHLORIDE

REACTIONS (6)
  - Asthenia [None]
  - Somnolence [None]
  - Lethargy [None]
  - Disorientation [None]
  - Depression [None]
  - Therapy cessation [None]

NARRATIVE: CASE EVENT DATE: 20250609
